FAERS Safety Report 15366459 (Version 1)
Quarter: 2018Q3

REPORT INFORMATION
  Report Type: Spontaneous
  Country: US (occurrence: US)
  Receive Date: 20180910
  Receipt Date: 20180910
  Transmission Date: 20181010
  Serious: Yes (Other)
  Sender: FDA-Public Use
  Company Number: US-SA-2017SA248325

PATIENT
  Age: 36 Year
  Sex: Female
  Weight: 79 kg

DRUGS (14)
  1. NEUPOGEN [Concomitant]
     Active Substance: FILGRASTIM
  2. ZOFRAN [ONDANSETRON HYDROCHLORIDE] [Concomitant]
  3. TYLENOL 8HR [Concomitant]
     Active Substance: ACETAMINOPHEN
  4. CYTOXAN [Concomitant]
     Active Substance: CYCLOPHOSPHAMIDE
  5. VICODIN [Concomitant]
     Active Substance: ACETAMINOPHEN\HYDROCODONE BITARTRATE
  6. TAXOTERE [Suspect]
     Active Substance: DOCETAXEL
     Indication: BREAST CANCER FEMALE
     Dosage: 143 MG, Q3W
     Route: 042
     Dates: start: 20110107, end: 20110107
  7. TAXOTERE [Suspect]
     Active Substance: DOCETAXEL
     Dosage: 143 MG, Q3W
     Route: 042
     Dates: start: 20110317, end: 20110317
  8. NORCO [Concomitant]
     Active Substance: ACETAMINOPHEN\HYDROCODONE BITARTRATE
  9. NEOSAR [Concomitant]
     Active Substance: CYCLOPHOSPHAMIDE
  10. METOCLOPRAMIDE. [Concomitant]
     Active Substance: METOCLOPRAMIDE
  11. PROMETHAZINE [Concomitant]
     Active Substance: PROMETHAZINE\PROMETHAZINE HYDROCHLORIDE
     Dosage: UNK
  12. BENADRYL 24 D [Concomitant]
     Active Substance: LORATADINE\PSEUDOEPHEDRINE SULFATE
  13. DECADRON [Concomitant]
     Active Substance: DEXAMETHASONE
  14. EMEND [Concomitant]
     Active Substance: APREPITANT

REACTIONS (6)
  - Psychological trauma [Unknown]
  - Impaired quality of life [Unknown]
  - Pain [Unknown]
  - Anxiety [Unknown]
  - Emotional distress [Unknown]
  - Alopecia [Recovering/Resolving]
